FAERS Safety Report 10035589 (Version 1)
Quarter: 2014Q1

REPORT INFORMATION
  Report Type: Spontaneous
  Country: HR (occurrence: None)
  Receive Date: 20140321
  Receipt Date: 20140321
  Transmission Date: 20141002
  Serious: Yes (Other)
  Sender: FDA-Public Use
  Company Number: E2B_7275646

PATIENT
  Age: 64 Year
  Sex: Female

DRUGS (2)
  1. EUTHYROX [Suspect]
     Indication: HYPOTHYROIDISM
     Dosage: 100 (UNSPECIFIED UNIT) (1 IN 1 D), ORAL?
     Route: 048
     Dates: start: 2009
  2. FOLACIN [Concomitant]

REACTIONS (2)
  - Musculoskeletal stiffness [None]
  - Muscle spasms [None]
